FAERS Safety Report 7705189-4 (Version None)
Quarter: 2011Q3

REPORT INFORMATION
  Report Type: 
  Country: None (occurrence: None)
  Receive Date: 20110824
  Receipt Date: 20110809
  Transmission Date: 20111222
  Serious: Yes (Other)
  Sender: FDA-Public Use
  Company Number: US-JNJFOC-20110800100

PATIENT
  Sex: Female

DRUGS (2)
  1. ULTRAM [Suspect]
     Indication: PAIN
     Route: 048
  2. CHLORDIAZEPOXIDE [Concomitant]
     Route: 048

REACTIONS (2)
  - ADVERSE EVENT [None]
  - CONSTIPATION [None]
